FAERS Safety Report 15614375 (Version 2)
Quarter: 2020Q2

REPORT INFORMATION
  Report Type: Spontaneous
  Country: CA (occurrence: CA)
  Receive Date: 20181113
  Receipt Date: 20200508
  Transmission Date: 20200713
  Serious: Yes (Other)
  Sender: FDA-Public Use
  Company Number: CA-PFIZER INC-2016593855

PATIENT
  Age: 64 Year
  Sex: Female

DRUGS (3)
  1. XELJANZ [Suspect]
     Active Substance: TOFACITINIB CITRATE
     Indication: RHEUMATOID ARTHRITIS
     Dosage: 5 MG, 2X/DAY
     Route: 048
     Dates: start: 20161215, end: 201804
  2. XELJANZ [Suspect]
     Active Substance: TOFACITINIB CITRATE
     Dosage: 5 MG, 1X/DAY
     Route: 048
     Dates: start: 201804, end: 202001
  3. PREDNISONE. [Concomitant]
     Active Substance: PREDNISONE
     Indication: RHEUMATOID ARTHRITIS
     Dosage: 1 DF, 1X/DAY
     Dates: end: 201706

REACTIONS (16)
  - Headache [Recovering/Resolving]
  - Dyspepsia [Recovered/Resolved]
  - Cystitis [Recovering/Resolving]
  - Asthenopia [Unknown]
  - Malaise [Unknown]
  - Cough [Unknown]
  - Anxiety [Unknown]
  - Discomfort [Unknown]
  - Eye pain [Recovering/Resolving]
  - Nasopharyngitis [Not Recovered/Not Resolved]
  - Mood altered [Unknown]
  - Asthenia [Unknown]
  - Product use issue [Unknown]
  - Fatigue [Recovered/Resolved]
  - Diabetes mellitus [Unknown]
  - Hypertension [Unknown]

NARRATIVE: CASE EVENT DATE: 201612
